FAERS Safety Report 8985776 (Version 1)
Quarter: 2012Q4

REPORT INFORMATION
  Report Type: 
  Country: JP (occurrence: JP)
  Receive Date: 20121226
  Receipt Date: 20121226
  Transmission Date: 20130627
  Serious: Yes (Other)
  Sender: FDA-Public Use
  Company Number: JP-ELI_LILLY_AND_COMPANY-JP201208004669

PATIENT
  Age: 65 Year
  Sex: Female

DRUGS (1)
  1. FORTEO [Suspect]
     Dosage: UNK
     Route: 058
     Dates: start: 201206

REACTIONS (4)
  - Fall [Recovered/Resolved]
  - Fracture [Unknown]
  - Injection site bruising [Unknown]
  - Pyrexia [Not Recovered/Not Resolved]
